FAERS Safety Report 8164089-9 (Version None)
Quarter: 2012Q1

REPORT INFORMATION
  Report Type: 
  Country: None (occurrence: None)
  Receive Date: 20120224
  Receipt Date: 20120223
  Transmission Date: 20120608
  Serious: Yes (Death, Hospitalization)
  Sender: FDA-Public Use
  Company Number: CH-BAYER-2012-017643

PATIENT
  Age: 89 Year
  Sex: Male

DRUGS (6)
  1. ASPIRIN [Suspect]
     Dosage: 100 MG, QD
     Route: 048
     Dates: end: 20120107
  2. CITALOPRAM HYDROBROMIDE [Suspect]
     Dosage: 20 MG, QD
     Route: 048
     Dates: end: 20120107
  3. GLUCOPHAGE [Concomitant]
     Dosage: 500 MG, TID
     Route: 048
  4. SINTROM [Suspect]
     Dosage: UNK
     Dates: end: 20120107
  5. MEMANTINE HYDROCHLORIDE [Concomitant]
     Dosage: UNK
  6. ZOCOR [Concomitant]
     Dosage: 5 MG, QD
     Route: 048

REACTIONS (5)
  - MOTOR DYSFUNCTION [None]
  - CEREBRAL HAEMORRHAGE [None]
  - PARALYSIS [None]
  - CONFUSIONAL STATE [None]
  - LOSS OF CONSCIOUSNESS [None]
